FAERS Safety Report 9288462 (Version 1)
Quarter: 2013Q2

REPORT INFORMATION
  Report Type: Spontaneous
  Country: JP (occurrence: JP)
  Receive Date: 20130514
  Receipt Date: 20130514
  Transmission Date: 20140414
  Serious: Yes (Other)
  Sender: FDA-Public Use
  Company Number: JP-PFIZER INC-2013143317

PATIENT
  Age: 59 Year
  Sex: Female

DRUGS (1)
  1. AMPICILLIN SODIUM/SULBACTAM SODIUM [Suspect]
     Indication: DIVERTICULITIS
     Dosage: UNK

REACTIONS (2)
  - Disseminated intravascular coagulation [Recovering/Resolving]
  - Pseudomembranous colitis [Recovering/Resolving]
